FAERS Safety Report 8315298-7 (Version None)
Quarter: 2012Q2

REPORT INFORMATION
  Report Type: 
  Country: None (occurrence: None)
  Receive Date: 20120426
  Receipt Date: 20120423
  Transmission Date: 20120825
  Serious: Yes (Other)
  Sender: FDA-Public Use
  Company Number: IE-PFIZER INC-2012100567

PATIENT
  Sex: Male

DRUGS (2)
  1. LYRICA [Suspect]
     Dosage: 50 MG, 3X/DAY
  2. LYRICA [Suspect]
     Dosage: 150 MG, 3X/DAY

REACTIONS (3)
  - MALAISE [None]
  - BEDRIDDEN [None]
  - SOMNOLENCE [None]
